FAERS Safety Report 5903163-1 (Version None)
Quarter: 2008Q3

REPORT INFORMATION
  Report Type: 
  Country: None (occurrence: None)
  Receive Date: 20080929
  Receipt Date: 20080929
  Transmission Date: 20090109
  Serious: No
  Sender: FDA-Public Use
  Company Number: None

PATIENT
  Age: 43 Year
  Sex: Female
  Weight: 89.3586 kg

DRUGS (3)
  1. CEFDINIR [Suspect]
     Indication: BRONCHITIS
     Dosage: 300 MG  2  PO
     Route: 048
     Dates: start: 20080926, end: 20080926
  2. CEFDINIR [Suspect]
     Indication: EAR INFECTION
     Dosage: 300 MG  2  PO
     Route: 048
     Dates: start: 20080926, end: 20080926
  3. CEFDINIR [Suspect]
     Indication: SINUSITIS
     Dosage: 300 MG  2  PO
     Route: 048
     Dates: start: 20080926, end: 20080926

REACTIONS (5)
  - ABNORMAL BEHAVIOUR [None]
  - DIARRHOEA [None]
  - DYSPEPSIA [None]
  - INSOMNIA [None]
  - VOMITING [None]
